FAERS Safety Report 13349609 (Version 4)
Quarter: 2019Q4

REPORT INFORMATION
  Report Type: Report from Study
  Country: SK (occurrence: SK)
  Receive Date: 20170320
  Receipt Date: 20191029
  Transmission Date: 20200122
  Serious: Yes (Death, Life-Threatening, Hospitalization, Disabling, Other)
  Sender: FDA-Public Use
  Company Number: PHHY2017SK041887

PATIENT
  Age: 27 Year
  Sex: Female
  Weight: 50 kg

DRUGS (1)
  1. GILENYA [Suspect]
     Active Substance: FINGOLIMOD HYDROCHLORIDE
     Indication: MULTIPLE SCLEROSIS
     Dosage: 0.5 MG, QD
     Route: 048
     Dates: start: 20131227, end: 201501

REACTIONS (5)
  - Anaplastic astrocytoma [Fatal]
  - Epilepsy [Fatal]
  - Loss of consciousness [Fatal]
  - General physical health deterioration [Unknown]
  - Brain oedema [Fatal]

NARRATIVE: CASE EVENT DATE: 201412
